FAERS Safety Report 20631571 (Version 1)
Quarter: 2022Q1

REPORT INFORMATION
  Report Type: Spontaneous
  Country: US (occurrence: None)
  Receive Date: 20220323
  Receipt Date: 20220323
  Transmission Date: 20220424
  Serious: Yes (Disabling)
  Sender: FDA-Public Use
  Company Number: None

PATIENT
  Sex: Female

DRUGS (10)
  1. TYLENOL [Suspect]
     Active Substance: ACETAMINOPHEN
     Indication: Pain
     Dosage: OTHER QUANTITY : 2 TABLET(S)?FREQUENCY : AS NEEDED?
     Route: 048
     Dates: start: 20190301, end: 20220302
  2. NOVOLOG [Suspect]
     Active Substance: INSULIN ASPART
     Indication: Diabetes mellitus
     Dates: start: 20190301, end: 20220302
  3. TOUJEO [Suspect]
     Active Substance: INSULIN GLARGINE
  4. DEXCOM [Concomitant]
  5. AMLODIPINE [Concomitant]
     Active Substance: AMLODIPINE BESYLATE
  6. FUROSEMIDE [Concomitant]
     Active Substance: FUROSEMIDE
  7. LOSARTAN [Concomitant]
  8. PREVACID [Concomitant]
     Active Substance: LANSOPRAZOLE
  9. ATORVASTATIN [Concomitant]
     Active Substance: ATORVASTATIN
  10. CARVEDILOL [Concomitant]
     Active Substance: CARVEDILOL

REACTIONS (5)
  - Blister [None]
  - Skin disorder [None]
  - Skin warm [None]
  - Pain of skin [None]
  - Gait disturbance [None]

NARRATIVE: CASE EVENT DATE: 20190301
